FAERS Safety Report 10229953 (Version 1)
Quarter: 2014Q2

REPORT INFORMATION
  Report Type: Spontaneous
  Country: US (occurrence: None)
  Receive Date: 20140610
  Receipt Date: 20140610
  Transmission Date: 20141212
  Serious: Yes (Other)
  Sender: FDA-Public Use
  Company Number: None

PATIENT
  Age: 59 Year
  Sex: Female
  Weight: 54.43 kg

DRUGS (2)
  1. TOPIRAMATE [Suspect]
     Indication: MIGRAINE
     Route: 048
     Dates: start: 20120601, end: 20120630
  2. TOPIRAMATE [Suspect]
     Indication: TREMOR
     Route: 048
     Dates: start: 20120601, end: 20120630

REACTIONS (6)
  - Ulcer [None]
  - Pain [None]
  - Condition aggravated [None]
  - Gastrooesophageal reflux disease [None]
  - Product substitution issue [None]
  - Drug effect decreased [None]
